FAERS Safety Report 13084487 (Version 1)
Quarter: 2017Q1

REPORT INFORMATION
  Report Type: Spontaneous
  Country: US (occurrence: US)
  Receive Date: 20170104
  Receipt Date: 20170104
  Transmission Date: 20170428
  Serious: No
  Sender: FDA-Public Use
  Company Number: None

PATIENT

DRUGS (3)
  1. HUMALOG [Suspect]
     Active Substance: INSULIN LISPRO
     Dosage: DOSAGE FORM - INJECTABLE?ADM ROUTE - INJECTION
  2. NOVOLIN R [Suspect]
     Active Substance: INSULIN HUMAN
  3. HUMULIN NOS [Suspect]
     Active Substance: INSULIN HUMAN

REACTIONS (2)
  - Drug dispensing error [None]
  - Transcription medication error [None]
